FAERS Safety Report 12867497 (Version 1)
Quarter: 2016Q4

REPORT INFORMATION
  Report Type: Spontaneous
  Country: US (occurrence: US)
  Receive Date: 20161020
  Receipt Date: 20161020
  Transmission Date: 20170207
  Serious: No
  Sender: FDA-Public Use
  Company Number: US-PFIZER INC-3085151

PATIENT

DRUGS (1)
  1. SODIUM BICARBONATE. [Suspect]
     Active Substance: SODIUM BICARBONATE
     Dosage: NOT APPLICABLE
     Route: 050

REACTIONS (3)
  - Laceration [Unknown]
  - Accident at work [Unknown]
  - Syringe issue [Unknown]

NARRATIVE: CASE EVENT DATE: 20151101
